FAERS Safety Report 23319388 (Version 1)
Quarter: 2023Q4

REPORT INFORMATION
  Report Type: Spontaneous
  Country: US (occurrence: US)
  Receive Date: 20231220
  Receipt Date: 20231220
  Transmission Date: 20240110
  Serious: Yes (Hospitalization, Other)
  Sender: FDA-Public Use
  Company Number: US-SCIEGENP-2023SCLIT00790

PATIENT
  Age: 62 Year
  Sex: Male

DRUGS (4)
  1. METFORMIN HYDROCHLORIDE [Suspect]
     Active Substance: METFORMIN HYDROCHLORIDE
     Indication: Type 2 diabetes mellitus
     Route: 065
  2. DOLUTEGRAVIR [Suspect]
     Active Substance: DOLUTEGRAVIR
     Indication: Blood HIV RNA below assay limit
     Route: 065
  3. ATAZANAVIR SULFATE\COBICISTAT [Concomitant]
     Active Substance: ATAZANAVIR SULFATE\COBICISTAT
     Indication: Blood HIV RNA below assay limit
     Route: 065
  4. Rilpivrine [Concomitant]
     Route: 065

REACTIONS (2)
  - Drug interaction [Unknown]
  - Lactic acidosis [Unknown]
